FAERS Safety Report 7118975-9 (Version None)
Quarter: 2010Q4

REPORT INFORMATION
  Report Type: 
  Country: None (occurrence: None)
  Receive Date: 20101123
  Receipt Date: 20101116
  Transmission Date: 20110411
  Serious: Yes (Hospitalization, Congenital Anomaly)
  Sender: FDA-Public Use
  Company Number: A0699357A

PATIENT
  Sex: Male

DRUGS (3)
  1. PAXIL [Suspect]
     Dates: start: 20020325
  2. PAROXETINE HYDROCHLORIDE [Suspect]
     Dates: start: 20031013, end: 20031219
  3. PAXIL CR [Suspect]
     Dates: start: 20040107, end: 20050326

REACTIONS (5)
  - DEVELOPMENTAL DELAY [None]
  - DRUG EXPOSURE DURING PREGNANCY [None]
  - PERSISTENT FOETAL CIRCULATION [None]
  - SPEECH DISORDER DEVELOPMENTAL [None]
  - TALIPES [None]
